FAERS Safety Report 9364722 (Version 1)
Quarter: 2013Q2

REPORT INFORMATION
  Report Type: Report from Study
  Country: US (occurrence: US)
  Receive Date: 20130624
  Receipt Date: 20130624
  Transmission Date: 20140414
  Serious: Yes (Death, Hospitalization)
  Sender: FDA-Public Use
  Company Number: US-SANOFI-AVENTIS-2013SA062694

PATIENT
  Age: 67 Year
  Sex: Male
  Weight: 60.4 kg

DRUGS (6)
  1. DOCETAXEL [Suspect]
     Indication: NON-SMALL CELL LUNG CANCER STAGE IV
     Route: 042
     Dates: start: 20121008, end: 20121008
  2. BLINDED THERAPY [Suspect]
     Indication: NON-SMALL CELL LUNG CANCER STAGE IV
     Route: 042
     Dates: start: 20121008, end: 20121008
  3. BLINDED THERAPY [Suspect]
     Indication: NON-SMALL CELL LUNG CANCER STAGE IV
     Route: 042
     Dates: start: 20121231, end: 20121231
  4. TESSALON [Concomitant]
     Indication: COUGH
  5. MEGACE [Concomitant]
     Indication: APPETITE DISORDER
  6. OXYCODONE [Concomitant]
     Indication: PAIN

REACTIONS (3)
  - Pneumonia aspiration [Fatal]
  - Metastatic pain [Unknown]
  - Dysphagia [Not Recovered/Not Resolved]
